FAERS Safety Report 24184897 (Version 2)
Quarter: 2025Q2

REPORT INFORMATION
  Report Type: Report from Study
  Country: FR (occurrence: FR)
  Receive Date: 20240807
  Receipt Date: 20250512
  Transmission Date: 20250716
  Serious: Yes (Death, Other)
  Sender: ROCHE
  Company Number: FR-ROCHE-10000048084

PATIENT

DRUGS (1)
  1. MYCOPHENOLATE MOFETIL [Suspect]
     Active Substance: MYCOPHENOLATE MOFETIL
     Indication: Ocular sarcoidosis
     Route: 065

REACTIONS (6)
  - Ophthalmic herpes zoster [Unknown]
  - Prostate cancer [Unknown]
  - Abdominal pain [Unknown]
  - Gastric cancer [Unknown]
  - Herpes virus infection [Unknown]
  - Cardiac sarcoidosis [Fatal]
